FAERS Safety Report 13025877 (Version 2)
Quarter: 2016Q4

REPORT INFORMATION
  Report Type: Spontaneous
  Country: PL (occurrence: PL)
  Receive Date: 20161214
  Receipt Date: 20161216
  Transmission Date: 20170207
  Serious: Yes (Other)
  Sender: FDA-Public Use
  Company Number: PL-ASTELLAS-2016US048446

PATIENT
  Age: 29 Week
  Sex: Female

DRUGS (8)
  1. MYCAMINE [Suspect]
     Active Substance: MICAFUNGIN SODIUM
     Indication: MENINGITIS CANDIDA
     Dosage: 8 MG/KG BODY MASS, ONCE DAILY
     Route: 065
  2. TAZOBACTAM [Concomitant]
     Active Substance: TAZOBACTAM
     Indication: NECROTISING COLITIS
     Dosage: UNK UNK, UNKNOWN FREQ.
     Route: 065
  3. BIODACIN [Concomitant]
     Indication: NECROTISING COLITIS
     Dosage: UNK UNK, UNKNOWN FREQ.
     Route: 065
  4. METRONIDAZOLE                      /00012502/ [Concomitant]
     Indication: NECROTISING COLITIS
     Dosage: UNK UNK, UNKNOWN FREQ.
     Route: 065
  5. AMPICILLIN [Concomitant]
     Active Substance: AMPICILLIN
     Indication: NECROTISING COLITIS
     Dosage: UNK UNK, UNKNOWN FREQ.
     Route: 065
  6. FLUCONAZOLE. [Concomitant]
     Active Substance: FLUCONAZOLE
     Indication: PROPHYLAXIS
     Dosage: UNK UNK, UNKNOWN FREQ.
     Route: 065
  7. MEROPENEM. [Concomitant]
     Active Substance: MEROPENEM
     Indication: NECROTISING COLITIS
     Dosage: UNK, UNKNOWN FREQ.
     Route: 065
  8. GENTAMICIN. [Concomitant]
     Active Substance: GENTAMICIN
     Indication: NECROTISING COLITIS
     Dosage: UNK UNK, UNKNOWN FREQ.
     Route: 065

REACTIONS (3)
  - Overdose [Unknown]
  - Candida infection [Unknown]
  - Drug ineffective [Unknown]
